FAERS Safety Report 25329530 (Version 2)
Quarter: 2025Q4

REPORT INFORMATION
  Report Type: Spontaneous
  Country: US (occurrence: US)
  Receive Date: 20250519
  Receipt Date: 20251010
  Transmission Date: 20260117
  Serious: No
  Sender: BRISTOL-MYERS SQUIBB COMPANY
  Company Number: US-BRISTOL-MYERS SQUIBB COMPANY-2025-071696

PATIENT
  Age: 63 Year
  Sex: Female

DRUGS (3)
  1. ORENCIA [Suspect]
     Active Substance: ABATACEPT
     Indication: Rheumatoid arthritis
     Dates: start: 202311
  2. ORENCIA [Suspect]
     Active Substance: ABATACEPT
     Dates: start: 202311
  3. REZDIFFRA [Concomitant]
     Active Substance: RESMETIROM
     Indication: Hepatic steatosis

REACTIONS (3)
  - Anxiety [Unknown]
  - Pain [Unknown]
  - Product administration interrupted [Unknown]

NARRATIVE: CASE EVENT DATE: 20250901
